FAERS Safety Report 7010146-X (Version None)
Quarter: 2010Q3

REPORT INFORMATION
  Report Type: 
  Country: None (occurrence: None)
  Receive Date: 20100923
  Receipt Date: 20100917
  Transmission Date: 20110219
  Serious: Yes (Other)
  Sender: FDA-Public Use
  Company Number: US-PFIZER INC-2008038093

PATIENT
  Sex: Male

DRUGS (3)
  1. CHANTIX [Suspect]
     Indication: SMOKING CESSATION THERAPY
     Dosage: 1 MG, 2X/DAY
     Dates: start: 20070601, end: 20080101
  2. CHANTIX [Suspect]
     Dosage: UNK
     Route: 048
  3. NICOTINE [Concomitant]
     Dosage: UNK
     Dates: start: 20070101

REACTIONS (9)
  - BEDRIDDEN [None]
  - CONFUSIONAL STATE [None]
  - DEPRESSION [None]
  - DISTURBANCE IN ATTENTION [None]
  - DYSKINESIA [None]
  - FEELING ABNORMAL [None]
  - MALAISE [None]
  - MENISCUS LESION [None]
  - TOBACCO USER [None]
